FAERS Safety Report 12555678 (Version 1)
Quarter: 2016Q3

REPORT INFORMATION
  Report Type: Spontaneous
  Country: US (occurrence: None)
  Receive Date: 20160713
  Receipt Date: 20160713
  Transmission Date: 20161109
  Serious: Yes (Hospitalization)
  Sender: FDA-Public Use
  Company Number: None

PATIENT
  Age: 71 Year
  Sex: Male
  Weight: 92 kg

DRUGS (2)
  1. TRIPTORELIN PAMOATE [Suspect]
     Active Substance: TRIPTORELIN PAMOATE
     Dates: end: 20150213
  2. CASODEX [Suspect]
     Active Substance: BICALUTAMIDE
     Dates: end: 20150421

REACTIONS (5)
  - Fluid overload [None]
  - Dyspnoea paroxysmal nocturnal [None]
  - Orthopnoea [None]
  - Left ventricular failure [None]
  - Condition aggravated [None]

NARRATIVE: CASE EVENT DATE: 20150422
